FAERS Safety Report 4665893-1 (Version None)
Quarter: 2005Q2

REPORT INFORMATION
  Report Type: 
  Country: None (occurrence: None)
  Receive Date: 20050517
  Receipt Date: 20050220
  Transmission Date: 20051028
  Serious: No
  Sender: FDA-Public Use
  Company Number: S05-USA-01181-01

PATIENT
  Age: 73 Year
  Sex: Female

DRUGS (8)
  1. NAMENDA [Suspect]
     Indication: DEMENTIA ALZHEIMER'S TYPE
     Dosage: 5 MG BID PO
     Route: 048
     Dates: start: 20050217, end: 20050223
  2. NAMENDA [Suspect]
     Indication: DEMENTIA ALZHEIMER'S TYPE
     Dosage: 5 MG BID PO
     Route: 048
     Dates: start: 20050228
  3. NAMENDA [Suspect]
     Indication: DEMENTIA ALZHEIMER'S TYPE
     Dosage: 5 MG QD PO
     Route: 048
     Dates: start: 20050210, end: 20050216
  4. NAMENDA [Suspect]
     Indication: DEMENTIA ALZHEIMER'S TYPE
     Dosage: 15 MG QD PO
     Route: 048
     Dates: start: 20050224, end: 20050227
  5. ARICEPT [Concomitant]
  6. HEART MEDICATION [Concomitant]
  7. HYPERTENSION MEDICATION [Concomitant]
  8. CHOLESTEROL MEDICATION [Concomitant]

REACTIONS (3)
  - EMOTIONAL DISTRESS [None]
  - NERVOUSNESS [None]
  - PHARYNGOLARYNGEAL PAIN [None]
